APPROVED DRUG PRODUCT: BETAGAN
Active Ingredient: LEVOBUNOLOL HYDROCHLORIDE
Strength: 0.5%
Dosage Form/Route: SOLUTION/DROPS;OPHTHALMIC
Application: N019219 | Product #002 | TE Code: AT
Applicant: ALLERGAN PHARMACEUTICAL
Approved: Dec 19, 1985 | RLD: Yes | RS: Yes | Type: RX